FAERS Safety Report 14451909 (Version 1)
Quarter: 2018Q1

REPORT INFORMATION
  Report Type: Spontaneous
  Country: US (occurrence: US)
  Receive Date: 20180129
  Receipt Date: 20180129
  Transmission Date: 20180509
  Serious: No
  Sender: FDA-Public Use
  Company Number: US-ABBVIE-17K-163-2205290-00

PATIENT
  Sex: Female

DRUGS (8)
  1. HUMIRA [Suspect]
     Active Substance: ADALIMUMAB
     Indication: HYPERMOBILITY SYNDROME
  2. ORENCIA [Suspect]
     Active Substance: ABATACEPT
     Indication: RHEUMATOID ARTHRITIS
     Route: 065
     Dates: start: 2017, end: 2017
  3. ENBREL [Suspect]
     Active Substance: ETANERCEPT
     Indication: RHEUMATOID ARTHRITIS
     Route: 065
     Dates: start: 2017, end: 2017
  4. REMICADE [Suspect]
     Active Substance: INFLIXIMAB
     Indication: RHEUMATOID ARTHRITIS
     Route: 065
     Dates: start: 2017, end: 2017
  5. ENBREL [Suspect]
     Active Substance: ETANERCEPT
     Indication: HYPERMOBILITY SYNDROME
  6. HUMIRA [Suspect]
     Active Substance: ADALIMUMAB
     Indication: RHEUMATOID ARTHRITIS
     Route: 058
     Dates: start: 2017, end: 2017
  7. ORENCIA [Suspect]
     Active Substance: ABATACEPT
     Indication: HYPERMOBILITY SYNDROME
  8. REMICADE [Suspect]
     Active Substance: INFLIXIMAB
     Indication: HYPERMOBILITY SYNDROME

REACTIONS (5)
  - Drug hypersensitivity [Unknown]
  - Drug ineffective [Unknown]
  - Urticaria [Unknown]
  - Nausea [Unknown]
  - Vomiting [Unknown]

NARRATIVE: CASE EVENT DATE: 2017
